APPROVED DRUG PRODUCT: XENON XE 133
Active Ingredient: XENON XE-133
Strength: 20mCi/VIAL
Dosage Form/Route: GAS;INHALATION
Application: N017687 | Product #003
Applicant: GE HEALTHCARE
Approved: Approved Prior to Jan 1, 1982 | RLD: No | RS: No | Type: DISCN